FAERS Safety Report 7733309-4 (Version None)
Quarter: 2011Q3

REPORT INFORMATION
  Report Type: 
  Country: None (occurrence: None)
  Receive Date: 20110907
  Receipt Date: 20110826
  Transmission Date: 20111222
  Serious: Yes (Hospitalization)
  Sender: FDA-Public Use
  Company Number: US-BAYER-2010-005342

PATIENT
  Age: 20 Year
  Sex: Female
  Weight: 72.562 kg

DRUGS (8)
  1. RETIN-A MICRO [Concomitant]
     Indication: ACNE
     Dosage: UNK
     Dates: start: 20040101, end: 20080101
  2. METROGEL [Concomitant]
     Indication: ACNE
     Dosage: UNK
     Dates: start: 20040101, end: 20080101
  3. MINOCYCLINE HCL [Concomitant]
     Indication: ACNE
     Dosage: UNK
     Dates: start: 20040101, end: 20080101
  4. ZYRTEC [Concomitant]
     Indication: MULTIPLE ALLERGIES
     Dosage: UNK UNK, PRN
  5. SULFACETAMIDE SODIUM [Concomitant]
     Indication: ACNE
     Dosage: UNK
     Dates: start: 20040101, end: 20080101
  6. YAZ [Suspect]
     Indication: ACNE
     Dosage: UNK
     Route: 048
     Dates: start: 20080901, end: 20081201
  7. ADVIL LIQUI-GELS [Concomitant]
     Dosage: UNK
  8. NSAID'S [Concomitant]

REACTIONS (10)
  - CHEST PAIN [None]
  - EMOTIONAL DISTRESS [None]
  - ANXIETY [None]
  - OEDEMA PERIPHERAL [None]
  - GENERAL PHYSICAL HEALTH DETERIORATION [None]
  - PULMONARY EMBOLISM [None]
  - DYSPNOEA [None]
  - DEEP VEIN THROMBOSIS [None]
  - PAIN [None]
  - INJURY [None]
